FAERS Safety Report 13434715 (Version 2)
Quarter: 2017Q4

REPORT INFORMATION
  Report Type: Report from Study
  Country: US (occurrence: US)
  Receive Date: 20170413
  Receipt Date: 20171112
  Transmission Date: 20180320
  Serious: No
  Sender: FDA-Public Use
  Company Number: PHEH2017US010847

PATIENT
  Sex: Female
  Weight: 108.8 kg

DRUGS (1)
  1. GILENYA [Suspect]
     Active Substance: FINGOLIMOD HYDROCHLORIDE
     Indication: MULTIPLE SCLEROSIS
     Dosage: 0.5 MG, QD
     Route: 048

REACTIONS (1)
  - Poor venous access [Unknown]
